FAERS Safety Report 8585444-9 (Version None)
Quarter: 2012Q3

REPORT INFORMATION
  Report Type: 
  Country: None (occurrence: None)
  Receive Date: 20120810
  Receipt Date: 20120803
  Transmission Date: 20120928
  Serious: Yes (Hospitalization, Other)
  Sender: FDA-Public Use
  Company Number: US-CELGENEUS-163-21880-12080761

PATIENT
  Sex: Male

DRUGS (14)
  1. LISINOPRIL [Concomitant]
     Route: 065
  2. LIDOCAINE [Concomitant]
     Route: 065
  3. INSULIN [Concomitant]
     Route: 065
  4. ZOMETA [Concomitant]
     Route: 065
  5. FLOMAX [Concomitant]
     Route: 065
  6. MIRALAX [Concomitant]
     Route: 065
  7. REVLIMID [Suspect]
     Indication: MULTIPLE MYELOMA
     Dosage: 25 MILLIGRAM
     Route: 048
     Dates: start: 20120712
  8. AMBIEN [Concomitant]
     Route: 065
  9. OMEPRAZOLE [Concomitant]
     Route: 065
  10. ZOFRAN [Concomitant]
     Route: 065
  11. VITAMIN D [Concomitant]
     Route: 065
  12. LIPITOR [Concomitant]
     Route: 065
  13. FENTANYL [Concomitant]
     Route: 065
  14. MORPHINE [Concomitant]
     Route: 065

REACTIONS (2)
  - INTERVERTEBRAL DISC PROTRUSION [None]
  - ARTHRITIS [None]
